FAERS Safety Report 5009578-0 (Version None)
Quarter: 2006Q2

REPORT INFORMATION
  Report Type: 
  Country: None (occurrence: None)
  Receive Date: 20060524
  Receipt Date: 20060511
  Transmission Date: 20061013
  Serious: Yes (Other)
  Sender: FDA-Public Use
  Company Number: PHEH2006US06188

PATIENT
  Age: 39 Year
  Sex: Male

DRUGS (6)
  1. ZELNORM [Suspect]
     Indication: CONSTIPATION
     Dosage: 6 MG, BID
     Route: 048
     Dates: start: 20060505
  2. COPAXONE [Concomitant]
  3. VICODIN [Concomitant]
  4. XANAX [Concomitant]
  5. BACLOFEN [Concomitant]
  6. LOTREL [Concomitant]
     Indication: HYPERTENSION
     Dosage: 5 MG AMOD/10 MG BENAZ QD
     Dates: start: 20041201

REACTIONS (2)
  - BLOOD PRESSURE INCREASED [None]
  - DIARRHOEA [None]
